FAERS Safety Report 8746397 (Version 3)
Quarter: 2013Q1

REPORT INFORMATION
  Report Type: Spontaneous
  Country: DE (occurrence: DE)
  Receive Date: 20120827
  Receipt Date: 20130208
  Transmission Date: 20140127
  Serious: Yes (Life-Threatening, Hospitalization, Disabling, Other)
  Sender: FDA-Public Use
  Company Number: DE-UCBSA-064210

PATIENT
  Age: 59 Year
  Sex: Male
  Weight: 80 kg

DRUGS (5)
  1. CIMZIA [Suspect]
     Indication: RHEUMATOID ARTHRITIS
     Dosage: UNKNOWN DOSE
  2. CIMZIA [Suspect]
     Indication: RHEUMATOID ARTHRITIS
     Route: 058
     Dates: start: 201008, end: 201208
  3. PREDNISOLONE [Concomitant]
  4. MTX [Concomitant]
     Route: 048
  5. DICLOFENAC [Concomitant]

REACTIONS (5)
  - Arrhythmia [Recovered/Resolved with Sequelae]
  - Blood pressure increased [Recovered/Resolved with Sequelae]
  - Tinnitus [Recovering/Resolving]
  - Pruritus [Recovered/Resolved with Sequelae]
  - Atrial fibrillation [Recovered/Resolved]
